FAERS Safety Report 4853916-6 (Version None)
Quarter: 2005Q4

REPORT INFORMATION
  Report Type: 
  Country: None (occurrence: None)
  Receive Date: 20051214
  Receipt Date: 20050728
  Transmission Date: 20060501
  Serious: Yes (Hospitalization)
  Sender: FDA-Public Use
  Company Number: US-MERCK-0507USA04325

PATIENT
  Age: 73 Year
  Sex: Female
  Weight: 96 kg

DRUGS (6)
  1. VIOXX [Suspect]
     Indication: ARTHRALGIA
     Route: 048
     Dates: start: 20000101, end: 20010816
  2. TYLENOL [Concomitant]
     Route: 065
  3. ASPIRIN [Concomitant]
     Route: 065
  4. LOTENSIN [Concomitant]
     Route: 065
  5. HYDROCHLOROTHIAZIDE [Concomitant]
     Route: 065
  6. PREMARIN [Concomitant]
     Route: 065

REACTIONS (10)
  - ANXIETY [None]
  - BREAST MASS [None]
  - CEREBROVASCULAR ACCIDENT [None]
  - DEPRESSION [None]
  - FIBROCYSTIC BREAST DISEASE [None]
  - GLUCOSE TOLERANCE IMPAIRED [None]
  - HEADACHE [None]
  - HYPERTENSION [None]
  - MICROANGIOPATHY [None]
  - PULMONARY HYPERTENSION [None]
